FAERS Safety Report 5806411-1 (Version None)
Quarter: 2008Q3

REPORT INFORMATION
  Report Type: 
  Country: None (occurrence: None)
  Receive Date: 20080710
  Receipt Date: 20080702
  Transmission Date: 20090109
  Serious: Yes (Other)
  Sender: FDA-Public Use
  Company Number: US-PFIZER INC-2008056259

PATIENT
  Sex: Female

DRUGS (8)
  1. LIPITOR [Suspect]
     Indication: BLOOD CHOLESTEROL INCREASED
     Dosage: TEXT:80 MG QD EVERY DAY TDD:80 MG
  2. ALLOPURINOL [Concomitant]
  3. CAPOTEN [Concomitant]
  4. FUROSEMIDE [Concomitant]
  5. ISOSORBIDE MONONITRATE [Concomitant]
  6. PREVACID [Concomitant]
  7. TICLID [Concomitant]
  8. ZETIA [Concomitant]

REACTIONS (4)
  - BLOOD MAGNESIUM DECREASED [None]
  - BLOOD SODIUM DECREASED [None]
  - MALABSORPTION [None]
  - VITAMIN D DECREASED [None]
